FAERS Safety Report 8313056-0 (Version None)
Quarter: 2012Q2

REPORT INFORMATION
  Report Type: 
  Country: None (occurrence: None)
  Receive Date: 20120426
  Receipt Date: 20120419
  Transmission Date: 20120825
  Serious: Yes (Hospitalization, Other)
  Sender: FDA-Public Use
  Company Number: BR-PFIZER INC-2012098265

PATIENT
  Age: 42 Year
  Sex: Male
  Weight: 120 kg

DRUGS (2)
  1. XALATAN [Suspect]
     Indication: GLAUCOMA
  2. XALATAN [Suspect]
     Indication: INTRAOCULAR PRESSURE INCREASED
     Dosage: UNK
     Route: 047

REACTIONS (4)
  - OCULAR HYPERAEMIA [None]
  - SURGERY [None]
  - INTRAOCULAR PRESSURE INCREASED [None]
  - EYE IRRITATION [None]
